FAERS Safety Report 5748092-1 (Version None)
Quarter: 2008Q2

REPORT INFORMATION
  Report Type: 
  Country: None (occurrence: None)
  Receive Date: 20080523
  Receipt Date: 20080513
  Transmission Date: 20081010
  Serious: Yes (Life-Threatening, Hospitalization)
  Sender: FDA-Public Use
  Company Number: ES-ROCHE-564113

PATIENT
  Age: 60 Year
  Sex: Female

DRUGS (5)
  1. RIVOTRIL [Suspect]
     Indication: OBSESSIVE-COMPULSIVE DISORDER
     Route: 048
     Dates: start: 20080101, end: 20080302
  2. BUSPAR [Interacting]
     Indication: OBSESSIVE-COMPULSIVE DISORDER
     Route: 048
     Dates: start: 20080101, end: 20080302
  3. FLUVOXAMINE MALEATE [Interacting]
     Indication: OBSESSIVE-COMPULSIVE DISORDER
     Route: 048
     Dates: start: 20080101, end: 20080302
  4. ZIPRASIDONE HCL [Interacting]
     Indication: OBSESSIVE-COMPULSIVE DISORDER
     Route: 048
     Dates: start: 20080101, end: 20080302
  5. CITALOPRAM HYDROBROMIDE [Concomitant]
     Indication: OBSESSIVE-COMPULSIVE DISORDER
     Dosage: DRUG NAME REPORTED AS: CITALOPRAM AMGER
     Route: 048
     Dates: start: 20080101

REACTIONS (4)
  - ASPIRATION BRONCHIAL [None]
  - DRUG INTERACTION [None]
  - MUSCLE SPASTICITY [None]
  - RESPIRATORY ARREST [None]
